FAERS Safety Report 8186787-3 (Version None)
Quarter: 2012Q1

REPORT INFORMATION
  Report Type: 
  Country: None (occurrence: None)
  Receive Date: 20120306
  Receipt Date: 20120306
  Transmission Date: 20120608
  Serious: Yes (Hospitalization)
  Sender: FDA-Public Use
  Company Number: None

PATIENT
  Age: 63 Year
  Sex: Male
  Weight: 65.7 kg

DRUGS (3)
  1. VORICONAZOLE [Concomitant]
     Route: 048
  2. SIMVASTATIN [Suspect]
     Indication: HYPERLIPIDAEMIA
     Dosage: 40 MG
     Route: 048
     Dates: start: 20110609, end: 20120305
  3. VORICONAZOLE [Concomitant]
     Route: 042

REACTIONS (6)
  - SEPTIC SHOCK [None]
  - ACUTE MYELOID LEUKAEMIA [None]
  - ACUTE CORONARY SYNDROME [None]
  - MUSCULAR WEAKNESS [None]
  - FEBRILE NEUTROPENIA [None]
  - RHABDOMYOLYSIS [None]
